FAERS Safety Report 6126298-X (Version None)
Quarter: 2009Q1

REPORT INFORMATION
  Report Type: 
  Country: None (occurrence: None)
  Receive Date: 20090320
  Receipt Date: 20090313
  Transmission Date: 20090719
  Serious: Yes (Hospitalization, Disabling)
  Sender: FDA-Public Use
  Company Number: DE-MERCK-0902DEU00388

PATIENT
  Age: 50 Year
  Sex: Female
  Weight: 63 kg

DRUGS (6)
  1. SINGULAIR [Suspect]
     Indication: ASTHMA
     Route: 048
     Dates: start: 20081105
  2. HYDROCORTISONE [Concomitant]
     Indication: ADRENAL INSUFFICIENCY
     Route: 048
     Dates: start: 20080401
  3. PANTOPRAZOLE SODIUM [Concomitant]
     Indication: GASTRITIS
     Route: 048
     Dates: start: 20060701
  4. SALMETEROL XINAFOATE [Concomitant]
     Indication: ASTHMA
     Dates: start: 20030101
  5. CICLESONIDE [Concomitant]
     Indication: ASTHMA
     Dates: start: 20070101
  6. INFLUENZA VIRUS SPLIT VIRION 3V VACCINE INACTIVATED [Suspect]
     Indication: PROPHYLAXIS
     Route: 030
     Dates: start: 20081113

REACTIONS (2)
  - FACIAL PALSY [None]
  - HERPES ZOSTER OTICUS [None]
